FAERS Safety Report 14991889 (Version 1)
Quarter: 2018Q2

REPORT INFORMATION
  Report Type: Spontaneous
  Country: FR (occurrence: FR)
  Receive Date: 20180608
  Receipt Date: 20180608
  Transmission Date: 20180711
  Serious: Yes (Hospitalization)
  Sender: FDA-Public Use
  Company Number: FR-009507513-1805FRA015081

PATIENT
  Age: 77 Year
  Sex: Male
  Weight: 85 kg

DRUGS (10)
  1. GLUCOR [Concomitant]
     Active Substance: ACARBOSE
     Dosage: UNK
  2. TAHOR [Concomitant]
     Active Substance: ATORVASTATIN CALCIUM
  3. KARDEGIC [Concomitant]
     Active Substance: ASPIRIN DL-LYSINE
     Dosage: UNK MG, UNK
  4. CELESTENE [Suspect]
     Active Substance: BETAMETHASONE
     Indication: ENDOPHTHALMITIS
     Dosage: IN TOTAL
     Route: 057
     Dates: start: 201801, end: 201801
  5. RAMIPRIL. [Concomitant]
     Active Substance: RAMIPRIL
  6. DIAMICRON [Concomitant]
     Active Substance: GLICLAZIDE
     Dosage: UNK MG, UNK
  7. JANUMET [Concomitant]
     Active Substance: METFORMIN HYDROCHLORIDE\SITAGLIPTIN PHOSPHATE
     Dosage: 50 MG/1000 MG
  8. CORTANCYL [Suspect]
     Active Substance: PREDNISONE
     Indication: ENDOPHTHALMITIS
     Dosage: 42 MG, QD
     Route: 048
     Dates: start: 201801, end: 201803
  9. NOVORAPID [Concomitant]
     Active Substance: INSULIN ASPART
  10. METFORMIN [Concomitant]
     Active Substance: METFORMIN HYDROCHLORIDE

REACTIONS (1)
  - Diabetes mellitus inadequate control [Recovering/Resolving]

NARRATIVE: CASE EVENT DATE: 20180131
